FAERS Safety Report 4293557-5 (Version None)
Quarter: 2004Q1

REPORT INFORMATION
  Report Type: 
  Country: None (occurrence: None)
  Receive Date: 20040210
  Receipt Date: 20040202
  Transmission Date: 20041129
  Serious: Yes (Hospitalization)
  Sender: FDA-Public Use
  Company Number: CA-JNJFOC-20040200708

PATIENT
  Age: 80 Year
  Sex: Female
  Weight: 42 kg

DRUGS (8)
  1. GALANTAMINE           (GALANTAMINE) [Suspect]
     Indication: COGNITIVE DISORDER
     Dosage: 8 MG, 2 IN 1 DAY, ORAL
     Route: 048
     Dates: start: 20031008, end: 20040131
  2. LEVODOPA (LEVODOPA) [Concomitant]
  3. IMOVANE (ZOPICLONE) [Concomitant]
  4. CALTRATE PLUS (CALTRATE PLUS) [Concomitant]
  5. MULTIVITAMIN [Concomitant]
  6. ES TYLENOL (PARACETAMOL) [Concomitant]
  7. FOSAMAX [Concomitant]
  8. ACETYLSALICYLIC ACID SRT [Concomitant]

REACTIONS (11)
  - AGITATION [None]
  - CEREBRAL HAEMORRHAGE [None]
  - COORDINATION ABNORMAL [None]
  - DISORIENTATION [None]
  - DYSPHAGIA [None]
  - HAEMORRHAGE INTRACRANIAL [None]
  - HEADACHE [None]
  - PAIN [None]
  - RESTLESSNESS [None]
  - SPEECH DISORDER [None]
  - WORD SALAD [None]
